FAERS Safety Report 4359827-7 (Version None)
Quarter: 2004Q2

REPORT INFORMATION
  Report Type: 
  Country: None (occurrence: None)
  Receive Date: 20040514
  Receipt Date: 20040503
  Transmission Date: 20050107
  Serious: Yes (Other)
  Sender: FDA-Public Use
  Company Number: 2004029944

PATIENT
  Sex: Female
  Weight: 79.3795 kg

DRUGS (3)
  1. NEURONTIN [Suspect]
     Indication: DEPRESSION
     Dosage: (THREE TIMES A DAY), ORAL
     Route: 048
     Dates: start: 19990101, end: 19990101
  2. NEURONTIN [Suspect]
     Indication: FIBROMYALGIA
     Dosage: (THREE TIMES A DAY), ORAL
     Route: 048
     Dates: start: 19990101, end: 19990101
  3. FLEXERIL [Concomitant]

REACTIONS (8)
  - ACTIVITIES OF DAILY LIVING IMPAIRED [None]
  - CATATONIA [None]
  - DRY MOUTH [None]
  - DYSPHONIA [None]
  - EYE ROLLING [None]
  - IMPAIRED DRIVING ABILITY [None]
  - MEMORY IMPAIRMENT [None]
  - SOMNOLENCE [None]
